FAERS Safety Report 14661290 (Version 3)
Quarter: 2018Q2

REPORT INFORMATION
  Report Type: Spontaneous
  Country: JP (occurrence: JP)
  Receive Date: 20180320
  Receipt Date: 20180410
  Transmission Date: 20180711
  Serious: Yes (Other)
  Sender: FDA-Public Use
  Company Number: JP-MYLANLABS-2018M1017831

PATIENT
  Age: 75 Year
  Sex: Male

DRUGS (8)
  1. CAPECITABINE. [Suspect]
     Active Substance: CAPECITABINE
     Dosage: 1800 MG/DAY; 4??????1200 MG/DAY???
     Route: 048
  2. OXALIPLATIN. [Suspect]
     Active Substance: OXALIPLATIN
     Indication: RECTAL CANCER
     Dosage: 4????
     Route: 065
  3. CAPECITABINE. [Suspect]
     Active Substance: CAPECITABINE
     Dosage: 3000 MG/DAY; REDUCED TO 2400 MG/DAY FROM THE SECOND COURSE
     Route: 048
     Dates: start: 201304
  4. CAPECITABINE. [Suspect]
     Active Substance: CAPECITABINE
     Dosage: 2400 MG/DAY; 3??????1800 MG/DAY???
     Route: 048
  5. OXALIPLATIN. [Suspect]
     Active Substance: OXALIPLATIN
     Dosage: 180 MG; 140 MG???
     Route: 065
  6. OXALIPLATIN. [Suspect]
     Active Substance: OXALIPLATIN
     Dosage: 140 MG
     Route: 065
  7. CAPECITABINE. [Suspect]
     Active Substance: CAPECITABINE
     Indication: RECTAL CANCER
     Dosage: FOUR CYCLES
     Route: 065
  8. CAPECITABINE. [Suspect]
     Active Substance: CAPECITABINE
     Dosage: 1200 MG/DAY
     Route: 048

REACTIONS (5)
  - Splenomegaly [Not Recovered/Not Resolved]
  - Weight increased [Recovered/Resolved]
  - Venoocclusive liver disease [Recovered/Resolved]
  - Ascites [Recovered/Resolved]
  - Thrombocytopenia [Not Recovered/Not Resolved]
